FAERS Safety Report 7371221-3 (Version None)
Quarter: 2011Q1

REPORT INFORMATION
  Report Type: 
  Country: None (occurrence: None)
  Receive Date: 20110321
  Receipt Date: 20110321
  Transmission Date: 20110831
  Serious: Yes (Other)
  Sender: FDA-Public Use
  Company Number: None

PATIENT
  Age: 46 Year
  Sex: Female
  Weight: 58.0604 kg

DRUGS (1)
  1. KETOCONAZOLE [Suspect]
     Indication: FUNGAL SKIN INFECTION
     Dosage: 1 14 DAYS
     Dates: start: 20110303, end: 20110316

REACTIONS (2)
  - SWELLING FACE [None]
  - URTICARIA [None]
